FAERS Safety Report 7833997-8 (Version None)
Quarter: 2011Q4

REPORT INFORMATION
  Report Type: 
  Country: None (occurrence: None)
  Receive Date: 20111024
  Receipt Date: 20111017
  Transmission Date: 20120403
  Serious: Yes (Hospitalization, Other)
  Sender: FDA-Public Use
  Company Number: US-JNJFOC-20111008358

PATIENT

DRUGS (9)
  1. LEVAQUIN [Suspect]
     Indication: DYSPNOEA
     Route: 048
  2. LEVAQUIN [Suspect]
     Route: 042
  3. LEVAQUIN [Suspect]
     Route: 042
  4. METFORMIN HCL [Concomitant]
     Indication: DIABETES MELLITUS
     Route: 047
  5. LEVAQUIN [Suspect]
     Route: 042
  6. LEVAQUIN [Suspect]
     Indication: PYREXIA
     Route: 048
  7. LEVAQUIN [Suspect]
     Indication: FATIGUE
     Route: 048
  8. LEVAQUIN [Suspect]
     Indication: CHEST PAIN
     Route: 048
  9. LEVAQUIN [Suspect]
     Route: 042

REACTIONS (10)
  - STEVENS-JOHNSON SYNDROME [None]
  - HEPATIC CYST [None]
  - AMNESIA [None]
  - ALOPECIA [None]
  - RENAL FAILURE [None]
  - RAYNAUD'S PHENOMENON [None]
  - STAPHYLOCOCCAL INFECTION [None]
  - RENAL CYST [None]
  - DEPRESSION [None]
  - CEREBROVASCULAR ACCIDENT [None]
